FAERS Safety Report 24162590 (Version 1)
Quarter: 2024Q3

REPORT INFORMATION
  Report Type: Spontaneous
  Country: US (occurrence: None)
  Receive Date: 20240731
  Receipt Date: 20240731
  Transmission Date: 20241017
  Serious: Yes (Hospitalization)
  Sender: Public
  Company Number: None

PATIENT
  Age: 60 Year
  Sex: Female

DRUGS (1)
  1. IBRANCE [Suspect]
     Active Substance: PALBOCICLIB
     Indication: Breast cancer female
     Dosage: OTHER FREQUENCY : DAILYFOR21DAYSTHEN7DAYS OFF;?
     Route: 048

REACTIONS (4)
  - Laboratory test abnormal [None]
  - Transfusion [None]
  - Therapy interrupted [None]
  - Inappropriate schedule of product administration [None]

NARRATIVE: CASE EVENT DATE: 20240726
